FAERS Safety Report 16022395 (Version 1)
Quarter: 2019Q1

REPORT INFORMATION
  Report Type: Report from Study
  Country: JP (occurrence: JP)
  Receive Date: 20190301
  Receipt Date: 20190301
  Transmission Date: 20190418
  Serious: No
  Sender: FDA-Public Use
  Company Number: JP-ACTELION-A-CH2017-164845

PATIENT
  Age: 27 Year
  Sex: Female

DRUGS (11)
  1. OPSUMIT [Suspect]
     Active Substance: MACITENTAN
     Dosage: 5 MG, OD
     Route: 048
     Dates: start: 20161022, end: 20170407
  2. FLOLAN [Concomitant]
     Active Substance: EPOPROSTENOL SODIUM
  3. REVATIO [Concomitant]
     Active Substance: SILDENAFIL CITRATE
  4. OPSUMIT [Suspect]
     Active Substance: MACITENTAN
     Dosage: 5 MG, BID
     Route: 048
     Dates: start: 20170408
  5. ALDACTONE A [Concomitant]
     Active Substance: SPIRONOLACTONE
  6. COVERSYL [Concomitant]
     Active Substance: PERINDOPRIL
  7. WARFARIN [Concomitant]
     Active Substance: WARFARIN
  8. DIGOXIN. [Concomitant]
     Active Substance: DIGOXIN
  9. PAXIL [Concomitant]
     Active Substance: PAROXETINE HYDROCHLORIDE
  10. OXYGEN. [Concomitant]
     Active Substance: OXYGEN
  11. OPSUMIT [Suspect]
     Active Substance: MACITENTAN
     Indication: PULMONARY ARTERIAL HYPERTENSION
     Dosage: 10 MG, QD
     Route: 048
     Dates: start: 20161008, end: 20161009

REACTIONS (6)
  - Hepatitis acute [Recovering/Resolving]
  - Flank pain [Recovering/Resolving]
  - Gamma-glutamyltransferase increased [Recovering/Resolving]
  - Headache [Recovered/Resolved]
  - Blood alkaline phosphatase increased [Recovering/Resolving]
  - Alanine aminotransferase increased [Recovering/Resolving]

NARRATIVE: CASE EVENT DATE: 20161009
